FAERS Safety Report 23535376 (Version 1)
Quarter: 2024Q1

REPORT INFORMATION
  Report Type: Report from Study
  Country: BR (occurrence: None)
  Receive Date: 20240218
  Receipt Date: 20240218
  Transmission Date: 20240409
  Serious: Yes (Hospitalization, Other)
  Sender: FDA-Public Use
  Company Number: 2024A036232

PATIENT
  Age: 30045 Day
  Sex: Female

DRUGS (1)
  1. SYMBICORT [Suspect]
     Active Substance: BUDESONIDE\FORMOTEROL FUMARATE DIHYDRATE
     Indication: Fatigue
     Dosage: 160/4.5 MCG,THREE TIMES A DAY
     Route: 055

REACTIONS (3)
  - Haemorrhagic stroke [Unknown]
  - Ischaemic stroke [Unknown]
  - Product administration error [Unknown]

NARRATIVE: CASE EVENT DATE: 20230808
